FAERS Safety Report 15751524 (Version 2)
Quarter: 2019Q1

REPORT INFORMATION
  Report Type: Spontaneous
  Country: RU (occurrence: RU)
  Receive Date: 20181221
  Receipt Date: 20190211
  Transmission Date: 20190417
  Serious: Yes (Hospitalization, Other)
  Sender: FDA-Public Use
  Company Number: RU-BAYER-2018-236990

PATIENT
  Age: 42 Year
  Sex: Female

DRUGS (4)
  1. MIRENA [Suspect]
     Active Substance: LEVONORGESTREL
     Indication: DYSFUNCTIONAL UTERINE BLEEDING
  2. MIRENA [Suspect]
     Active Substance: LEVONORGESTREL
     Indication: HAEMORRHAGE PROPHYLAXIS
  3. MIRENA [Suspect]
     Active Substance: LEVONORGESTREL
     Indication: HAEMORRHAGE PROPHYLAXIS
  4. MIRENA [Suspect]
     Active Substance: LEVONORGESTREL
     Indication: DYSFUNCTIONAL UTERINE BLEEDING
     Dosage: 20 MCG/24HR, CONT
     Route: 015
     Dates: start: 20180521, end: 20181207

REACTIONS (3)
  - Genital haemorrhage [None]
  - Uterine polyp [None]
  - Uterine inflammation [None]

NARRATIVE: CASE EVENT DATE: 20181112
